FAERS Safety Report 4313230-4 (Version None)
Quarter: 2004Q1

REPORT INFORMATION
  Report Type: 
  Country: None (occurrence: None)
  Receive Date: 20040304
  Receipt Date: 20040226
  Transmission Date: 20041129
  Serious: Yes (Other)
  Sender: FDA-Public Use
  Company Number: TEST00201002702

PATIENT
  Age: 62 Year
  Sex: Male

DRUGS (7)
  1. ANDROGEL [Suspect]
     Indication: HYPOGONADISM
     Dosage: 10 G DAILY TD
     Route: 062
     Dates: start: 19980717, end: 19990119
  2. ASCORBIC ACID [Concomitant]
  3. CHONDROITIN SULFATE (CHONDROITIN SULFATE) [Concomitant]
  4. CONTAC [Concomitant]
  5. GLUCOSAMINE [Concomitant]
  6. HERBAL PREPARATION (HERBAL PREPARATION) [Concomitant]
  7. TOCOPHEROL CONCENTRATE CAP [Concomitant]

REACTIONS (6)
  - ANGIOPATHY [None]
  - BENIGN PROSTATIC HYPERPLASIA [None]
  - ERECTILE DYSFUNCTION [None]
  - LIBIDO DECREASED [None]
  - PROSTATE CANCER [None]
  - PROSTATIC SPECIFIC ANTIGEN INCREASED [None]
